FAERS Safety Report 23411467 (Version 1)
Quarter: 2024Q1

REPORT INFORMATION
  Report Type: Spontaneous
  Country: AR (occurrence: AR)
  Receive Date: 20240117
  Receipt Date: 20240117
  Transmission Date: 20240410
  Serious: Yes (Other)
  Sender: FDA-Public Use
  Company Number: AR-PFIZER INC-PV202400006433

PATIENT
  Age: 82 Year
  Sex: Female

DRUGS (4)
  1. IBRANCE [Suspect]
     Active Substance: PALBOCICLIB
     Indication: Breast cancer metastatic
     Dosage: UNK, DAILY
     Dates: start: 20220215
  2. IBRANCE [Suspect]
     Active Substance: PALBOCICLIB
     Dosage: CYCLIC( THREE WEEKS OF INTAKE AND TEN DAYS OF REST)
  3. RIBOCICLIB [Concomitant]
     Active Substance: RIBOCICLIB
     Dosage: THREE PILLS A DAY
  4. LETROZOLE [Concomitant]
     Active Substance: LETROZOLE

REACTIONS (3)
  - Sjogren^s syndrome [Not Recovered/Not Resolved]
  - Decreased immune responsiveness [Not Recovered/Not Resolved]
  - Off label use [Not Recovered/Not Resolved]
